FAERS Safety Report 24152588 (Version 2)
Quarter: 2024Q3

REPORT INFORMATION
  Report Type: Spontaneous
  Country: US (occurrence: US)
  Receive Date: 20240730
  Receipt Date: 20240904
  Transmission Date: 20241017
  Serious: No
  Sender: INCYTE
  Company Number: US-INCYTE CORPORATION-2024IN007690

PATIENT

DRUGS (2)
  1. JAKAFI [Suspect]
     Active Substance: RUXOLITINIB
     Indication: Polycythaemia vera
     Dosage: 15 MILLIGRAM, QAM
     Route: 048
     Dates: start: 202401
  2. JAKAFI [Suspect]
     Active Substance: RUXOLITINIB
     Dosage: 10 MILLIGRAM, QPM
     Route: 048
     Dates: start: 202401

REACTIONS (8)
  - Ear infection [Unknown]
  - Excessive cerumen production [Unknown]
  - Pharyngeal erythema [Unknown]
  - Throat irritation [Unknown]
  - Sinus congestion [Unknown]
  - Fatigue [Unknown]
  - Transferrin saturation decreased [Unknown]
  - Anaemia [Unknown]

NARRATIVE: CASE EVENT DATE: 20240511
